FAERS Safety Report 25727755 (Version 1)
Quarter: 2025Q3

REPORT INFORMATION
  Report Type: Spontaneous
  Country: US (occurrence: US)
  Receive Date: 20250826
  Receipt Date: 20250826
  Transmission Date: 20251021
  Serious: No
  Sender: BAUSCH AND LOMB
  Company Number: US-BAUSCHBL-2025BNL014708

PATIENT
  Age: 63 Year
  Sex: Female

DRUGS (4)
  1. LEVOBUNOLOL HYDROCHLORIDE [Suspect]
     Active Substance: LEVOBUNOLOL HYDROCHLORIDE
     Indication: Glaucoma
     Route: 047
  2. LEVOBUNOLOL HYDROCHLORIDE [Suspect]
     Active Substance: LEVOBUNOLOL HYDROCHLORIDE
     Route: 047
     Dates: start: 20250713
  3. LEVOBUNOLOL HYDROCHLORIDE [Suspect]
     Active Substance: LEVOBUNOLOL HYDROCHLORIDE
     Route: 047
     Dates: start: 20250806, end: 202508
  4. TRAVOPROST [Concomitant]
     Active Substance: TRAVOPROST
     Indication: Product used for unknown indication

REACTIONS (6)
  - Eyelid disorder [Unknown]
  - Swelling of eyelid [Unknown]
  - Dermatitis [Unknown]
  - Reaction to preservatives [Unknown]
  - Burning sensation [Unknown]
  - Eye pruritus [Unknown]
